FAERS Safety Report 25547066 (Version 1)
Quarter: 2025Q3

REPORT INFORMATION
  Report Type: Spontaneous
  Country: CN (occurrence: CN)
  Receive Date: 20250714
  Receipt Date: 20250714
  Transmission Date: 20251020
  Serious: Yes (Hospitalization, Other)
  Sender: ASTELLAS
  Company Number: CN-ASTELLAS-2025-AER-037761

PATIENT
  Age: 3 Year
  Sex: Male
  Weight: 13.2 kg

DRUGS (1)
  1. TACROLIMUS [Suspect]
     Active Substance: TACROLIMUS
     Indication: Liver transplant
     Dosage: DRUG LEVELS MAINTAINED AT 7.1 NG/ML, RANGING FROM 2.5 TO 11.5 NG/ML
     Route: 048
     Dates: start: 202302, end: 2024

REACTIONS (2)
  - Immune thrombocytopenia [Recovered/Resolved]
  - Herpes simplex [Unknown]

NARRATIVE: CASE EVENT DATE: 20231201
